FAERS Safety Report 19404570 (Version 1)
Quarter: 2021Q2

REPORT INFORMATION
  Report Type: Spontaneous
  Country: IN (occurrence: IN)
  Receive Date: 20210611
  Receipt Date: 20210611
  Transmission Date: 20210717
  Serious: Yes (Disabling)
  Sender: FDA-Public Use
  Company Number: None

PATIENT
  Age: 20 Year
  Sex: Male
  Weight: 67 kg

DRUGS (1)
  1. MINOXIDIL. [Suspect]
     Active Substance: MINOXIDIL
     Indication: ANDROGENETIC ALOPECIA
     Dosage: ?          QUANTITY:1 ML;OTHER ROUTE:SCALP?
     Dates: start: 20210207, end: 20210420

REACTIONS (7)
  - Post micturition dribble [None]
  - Joint stiffness [None]
  - Fatigue [None]
  - Muscle disorder [None]
  - Testicular pain [None]
  - Gynaecomastia [None]
  - Tendon disorder [None]

NARRATIVE: CASE EVENT DATE: 20210420
